FAERS Safety Report 11929680 (Version 2)
Quarter: 2016Q1

REPORT INFORMATION
  Report Type: Report from Study
  Country: US (occurrence: US)
  Receive Date: 20160120
  Receipt Date: 20160303
  Transmission Date: 20160526
  Serious: No
  Sender: FDA-Public Use
  Company Number: US-AMGEN-USASL2016004014

PATIENT
  Age: 9 Year
  Sex: Female

DRUGS (1)
  1. ENBREL [Suspect]
     Active Substance: ETANERCEPT
     Indication: JUVENILE IDIOPATHIC ARTHRITIS
     Dosage: 25 MG, QWK
     Route: 065
     Dates: start: 201504

REACTIONS (9)
  - Diarrhoea [Unknown]
  - Cyst [Unknown]
  - Condition aggravated [Unknown]
  - Localised infection [Unknown]
  - Incorrect dose administered [Unknown]
  - Joint lock [Unknown]
  - Device leakage [Unknown]
  - Pain [Unknown]
  - Mouth ulceration [Unknown]

NARRATIVE: CASE EVENT DATE: 2015
